FAERS Safety Report 6527257-5 (Version None)
Quarter: 2010Q1

REPORT INFORMATION
  Report Type: 
  Country: None (occurrence: None)
  Receive Date: 20100105
  Receipt Date: 20091228
  Transmission Date: 20100710
  Serious: Yes (Other)
  Sender: FDA-Public Use
  Company Number: US-PFIZER INC-2009315915

PATIENT
  Sex: Female
  Weight: 63.492 kg

DRUGS (8)
  1. NEURONTIN [Suspect]
     Indication: NEUROPATHY PERIPHERAL
     Dosage: 300 MG, 3X/DAY
     Route: 048
  2. LYRICA [Suspect]
     Indication: NEUROPATHY PERIPHERAL
     Dosage: UNK
     Route: 048
  3. TEGRETOL [Concomitant]
     Dosage: UNK
  4. KLONOPIN [Concomitant]
     Dosage: UNK
  5. MS CONTIN [Concomitant]
     Dosage: UNK
  6. BACLOFEN [Concomitant]
     Dosage: UNK
  7. LEVOTHYROXINE [Concomitant]
     Dosage: UNK
  8. WARFARIN SODIUM [Concomitant]
     Dosage: UNK

REACTIONS (6)
  - FEELING DRUNK [None]
  - INCOHERENT [None]
  - MOVEMENT DISORDER [None]
  - SOMNOLENCE [None]
  - SWOLLEN TONGUE [None]
  - URINARY RETENTION [None]
